FAERS Safety Report 7136148-0 (Version None)
Quarter: 2010Q4

REPORT INFORMATION
  Report Type: 
  Country: None (occurrence: None)
  Receive Date: 20101205
  Receipt Date: 20101129
  Transmission Date: 20110411
  Serious: Yes (Other)
  Sender: FDA-Public Use
  Company Number: IT-BRISTOL-MYERS SQUIBB COMPANY-15414923

PATIENT
  Sex: Female

DRUGS (3)
  1. ABILIFY [Suspect]
     Indication: BIPOLAR DISORDER
     Dosage: DOSE REDUCED TO 2.5MG/D
  2. LITHIUM CARBONATE [Suspect]
     Indication: BIPOLAR DISORDER
  3. CITALOPRAM HYDROBROMIDE [Suspect]
     Indication: BIPOLAR DISORDER

REACTIONS (2)
  - ROAD TRAFFIC ACCIDENT [None]
  - SOMNOLENCE [None]
